FAERS Safety Report 8590821-6 (Version None)
Quarter: 2012Q3

REPORT INFORMATION
  Report Type: 
  Country: None (occurrence: None)
  Receive Date: 20120813
  Receipt Date: 20120803
  Transmission Date: 20120928
  Serious: Yes (Death)
  Sender: FDA-Public Use
  Company Number: US-SAVIENT-2012S1000076

PATIENT
  Age: 70 Year
  Sex: Male
  Weight: 72.58 kg

DRUGS (3)
  1. KRYSTEXXA [Suspect]
     Indication: GOUTY TOPHUS
     Route: 042
  2. ALL OTHER THERAPEUTIC PRODUCTS [Concomitant]
     Indication: PREMEDICATION
  3. LASIX [Concomitant]
     Indication: CARDIAC FAILURE CONGESTIVE

REACTIONS (3)
  - ARRHYTHMIA [None]
  - NAUSEA [None]
  - MALAISE [None]
